FAERS Safety Report 10216481 (Version 1)
Quarter: 2014Q2

REPORT INFORMATION
  Report Type: Spontaneous
  Country: US (occurrence: None)
  Receive Date: 20140603
  Receipt Date: 20140603
  Transmission Date: 20141212
  Serious: Yes (Disabling)
  Sender: FDA-Public Use
  Company Number: None

PATIENT
  Age: 57 Year
  Sex: Male
  Weight: 92.99 kg

DRUGS (3)
  1. DEPO-MEDROL PFIZER [Suspect]
     Indication: EPIDURAL INJECTION
     Dates: start: 20131014
  2. PREDNISONE [Concomitant]
  3. ALEVE [Concomitant]

REACTIONS (3)
  - Pain [None]
  - Muscular weakness [None]
  - Blood pressure increased [None]
